FAERS Safety Report 21100003 (Version 1)
Quarter: 2022Q3

REPORT INFORMATION
  Report Type: Spontaneous
  Country: BR (occurrence: BR)
  Receive Date: 20220719
  Receipt Date: 20220719
  Transmission Date: 20221027
  Serious: Yes (Hospitalization, Disabling, Other)
  Sender: FDA-Public Use
  Company Number: BR-BAYER-2021A245612

PATIENT
  Age: 23 Year
  Sex: Female

DRUGS (1)
  1. YASMIN [Suspect]
     Active Substance: DROSPIRENONE\ETHINYL ESTRADIOL
     Indication: Contraception
     Dosage: UNK
     Route: 048
     Dates: start: 2015, end: 2016

REACTIONS (14)
  - Haemorrhagic stroke [Recovered/Resolved with Sequelae]
  - Cerebral venous thrombosis [Recovered/Resolved with Sequelae]
  - Speech disorder [Not Recovered/Not Resolved]
  - Motor dysfunction [Not Recovered/Not Resolved]
  - Coordination abnormal [Not Recovered/Not Resolved]
  - Memory impairment [Not Recovered/Not Resolved]
  - Mobility decreased [Not Recovered/Not Resolved]
  - Malaise [Recovered/Resolved with Sequelae]
  - Pain [Recovered/Resolved with Sequelae]
  - Syncope [Recovered/Resolved with Sequelae]
  - Asthenia [Not Recovered/Not Resolved]
  - Headache [Recovered/Resolved with Sequelae]
  - Discomfort [Not Recovered/Not Resolved]
  - Mental disorder [Not Recovered/Not Resolved]

NARRATIVE: CASE EVENT DATE: 20160619
